FAERS Safety Report 6203575-5 (Version None)
Quarter: 2009Q2

REPORT INFORMATION
  Report Type: 
  Country: None (occurrence: None)
  Receive Date: 20090527
  Receipt Date: 20090518
  Transmission Date: 20091009
  Serious: Yes (Life-Threatening)
  Sender: FDA-Public Use
  Company Number: JP-BRISTOL-MYERS SQUIBB COMPANY-14636856

PATIENT
  Age: 1 Day
  Sex: Male
  Weight: 3 kg

DRUGS (1)
  1. ABILIFY [Suspect]
     Indication: SCHIZOPHRENIA
     Dosage: 30MAR08-UNK:6MG TRANSPLACENTAL UNK-10JAN09:12MG TRANSPLACENTAL 11JAN09-ONG:12MG TRANSMAMMARY
     Route: 064
     Dates: start: 20080330

REACTIONS (2)
  - DRUG EXPOSURE VIA BREAST MILK [None]
  - NEONATAL ASPHYXIA [None]
